FAERS Safety Report 11292916 (Version 1)
Quarter: 2015Q3

REPORT INFORMATION
  Report Type: Spontaneous
  Country: US (occurrence: US)
  Receive Date: 20150722
  Receipt Date: 20150722
  Transmission Date: 20151125
  Serious: No
  Sender: FDA-Public Use
  Company Number: US-ASTRAZENECA-2015SE68288

PATIENT
  Sex: Female
  Weight: 59 kg

DRUGS (9)
  1. ACTOLATE [Concomitant]
     Indication: DYSPNOEA
  2. EPIPEN [Concomitant]
     Active Substance: EPINEPHRINE
     Indication: ASTHMA
  3. MUCINEX [Concomitant]
     Active Substance: GUAIFENESIN
  4. PREDNISONE. [Concomitant]
     Active Substance: PREDNISONE
  5. SYMBICORT [Suspect]
     Active Substance: BUDESONIDE\FORMOTEROL FUMARATE DIHYDRATE
     Indication: ASTHMA
     Dosage: 160 4.5, 2 PUFFS TWICE A DAY
     Route: 055
  6. SYMBICORT [Suspect]
     Active Substance: BUDESONIDE\FORMOTEROL FUMARATE DIHYDRATE
     Indication: ASTHMA
     Dosage: 160 4.5, 2 PUFFS TWICE A DAY
     Route: 055
  7. DULERA [Concomitant]
     Active Substance: FORMOTEROL FUMARATE DIHYDRATE\MOMETASONE FUROATE
  8. THEOPHYLLINE [Concomitant]
     Active Substance: THEOPHYLLINE ANHYDROUS
     Indication: ASTHMA
     Route: 048
  9. VENTOLIN HFA [Concomitant]
     Active Substance: ALBUTEROL SULFATE
     Indication: ASTHMA
     Dosage: AS REQUIRED

REACTIONS (2)
  - Cough [Unknown]
  - Discomfort [Unknown]
